FAERS Safety Report 12715891 (Version 1)
Quarter: 2016Q3

REPORT INFORMATION
  Report Type: Spontaneous
  Country: JP (occurrence: JP)
  Receive Date: 20160906
  Receipt Date: 20160906
  Transmission Date: 20161109
  Serious: Yes (Other)
  Sender: FDA-Public Use
  Company Number: JP-SA-2016SA127087

PATIENT
  Age: 76 Year
  Sex: Male

DRUGS (6)
  1. BCG FOR IMMUNOTHERAPY [Suspect]
     Active Substance: BACILLUS CALMETTE-GUERIN ANTIGEN, UNSPECIFIED SUBSTRAIN
     Indication: URINARY TRACT CARCINOMA IN SITU
     Route: 043
  2. BCG FOR IMMUNOTHERAPY [Suspect]
     Active Substance: BACILLUS CALMETTE-GUERIN ANTIGEN, UNSPECIFIED SUBSTRAIN
     Indication: URINARY TRACT CARCINOMA IN SITU
     Route: 043
  3. BCG FOR IMMUNOTHERAPY [Suspect]
     Active Substance: BACILLUS CALMETTE-GUERIN ANTIGEN, UNSPECIFIED SUBSTRAIN
     Indication: URINARY TRACT CARCINOMA IN SITU
     Route: 043
     Dates: start: 20090625, end: 20090625
  4. BCG FOR IMMUNOTHERAPY [Suspect]
     Active Substance: BACILLUS CALMETTE-GUERIN ANTIGEN, UNSPECIFIED SUBSTRAIN
     Indication: URINARY TRACT CARCINOMA IN SITU
     Route: 043
  5. BCG FOR IMMUNOTHERAPY [Suspect]
     Active Substance: BACILLUS CALMETTE-GUERIN ANTIGEN, UNSPECIFIED SUBSTRAIN
     Indication: URINARY TRACT CARCINOMA IN SITU
     Route: 043
     Dates: start: 20090813, end: 20090813
  6. BCG FOR IMMUNOTHERAPY [Suspect]
     Active Substance: BACILLUS CALMETTE-GUERIN ANTIGEN, UNSPECIFIED SUBSTRAIN
     Indication: URINARY TRACT CARCINOMA IN SITU
     Route: 043

REACTIONS (4)
  - Dysuria [Unknown]
  - Pyelonephritis acute [Recovering/Resolving]
  - Benign prostatic hyperplasia [Unknown]
  - Residual urine volume increased [Unknown]

NARRATIVE: CASE EVENT DATE: 20090716
